FAERS Safety Report 25167793 (Version 1)
Quarter: 2025Q2

REPORT INFORMATION
  Report Type: Report from Study
  Country: US (occurrence: US)
  Receive Date: 20250407
  Receipt Date: 20250407
  Transmission Date: 20250716
  Serious: Yes (Hospitalization)
  Sender: EISAI
  Company Number: US-Eisai-EC-2025-186887

PATIENT
  Age: 77 Year
  Sex: Female
  Weight: 46 kg

DRUGS (29)
  1. LENVIMA [Suspect]
     Active Substance: LENVATINIB
     Indication: Endometrial cancer
     Dosage: ONLY TAKING 10MG INSTEAD OF 20MG
     Dates: start: 202307, end: 20230819
  2. LENVIMA [Suspect]
     Active Substance: LENVATINIB
     Indication: Ovarian cancer
     Dates: start: 20230820, end: 202308
  3. LENVIMA [Suspect]
     Active Substance: LENVATINIB
     Dosage: OFF MEDICATION FOR 2 DAYS
     Dates: start: 202308, end: 20231011
  4. LENVIMA [Suspect]
     Active Substance: LENVATINIB
     Dates: start: 2023, end: 202404
  5. LENVIMA [Suspect]
     Active Substance: LENVATINIB
     Dates: start: 202404, end: 202405
  6. LENVIMA [Suspect]
     Active Substance: LENVATINIB
     Dates: start: 202409, end: 202409
  7. LENVIMA [Suspect]
     Active Substance: LENVATINIB
     Dates: end: 20240910
  8. LENVIMA [Suspect]
     Active Substance: LENVATINIB
     Dates: end: 20241217
  9. LENVIMA [Suspect]
     Active Substance: LENVATINIB
     Dates: start: 202501, end: 202501
  10. LENVIMA [Suspect]
     Active Substance: LENVATINIB
     Dates: end: 20250326
  11. KEYTRUDA [Concomitant]
     Active Substance: PEMBROLIZUMAB
     Indication: Ovarian cancer
     Dates: start: 20230522, end: 20241217
  12. KEYTRUDA [Concomitant]
     Active Substance: PEMBROLIZUMAB
     Indication: Endometrial cancer
     Dates: start: 202502
  13. ZOCOR [Concomitant]
     Active Substance: SIMVASTATIN
  14. NORVASC [Concomitant]
     Active Substance: AMLODIPINE BESYLATE
  15. FENTANYL [Concomitant]
     Active Substance: FENTANYL
  16. ZOFRAN [Concomitant]
     Active Substance: ONDANSETRON HYDROCHLORIDE
  17. PROTONIX [Concomitant]
     Active Substance: PANTOPRAZOLE SODIUM
  18. DICYCLOMINE [Concomitant]
     Active Substance: DICYCLOMINE HYDROCHLORIDE
  19. INTESTINEX [Concomitant]
  20. IMODIUM A-D [Concomitant]
     Active Substance: LOPERAMIDE HYDROCHLORIDE
  21. ROBINUL-FORTE [Concomitant]
  22. SIMVASTATIN [Concomitant]
     Active Substance: SIMVASTATIN
  23. SYNTHROID [Concomitant]
     Active Substance: LEVOTHYROXINE SODIUM
  24. GABAPENTIN [Concomitant]
     Active Substance: GABAPENTIN
  25. ZYRTEC [Concomitant]
     Active Substance: CETIRIZINE HYDROCHLORIDE
  26. DECADRON [Concomitant]
     Active Substance: DEXAMETHASONE
  27. PROBIOTICS NOS [Concomitant]
     Active Substance: PROBIOTICS NOS
  28. TUSNEL [Concomitant]
     Active Substance: DEXTROMETHORPHAN HYDROBROMIDE\GUAIFENESIN\PSEUDOEPHEDRINE HYDROCHLORIDE
  29. TOPROL XL [Concomitant]
     Active Substance: METOPROLOL SUCCINATE

REACTIONS (3)
  - Vomiting [Recovering/Resolving]
  - Weight decreased [Not Recovered/Not Resolved]
  - Abdominal pain upper [Not Recovered/Not Resolved]

NARRATIVE: CASE EVENT DATE: 20250130
